FAERS Safety Report 7725501-X (Version None)
Quarter: 2011Q3

REPORT INFORMATION
  Report Type: 
  Country: None (occurrence: None)
  Receive Date: 20110902
  Receipt Date: 20110608
  Transmission Date: 20111222
  Serious: No
  Sender: FDA-Public Use
  Company Number: US-BRISTOL-MYERS SQUIBB COMPANY-15812894

PATIENT
  Age: 47 Year
  Sex: Female

DRUGS (5)
  1. KOMBIGLYZE XR [Suspect]
     Dosage: 1DF:2.5/1000 UNIT NOS
  2. CYTOMEL [Concomitant]
  3. SYNTHROID [Concomitant]
  4. MICARDIS [Concomitant]
  5. RYTHMOL [Concomitant]

REACTIONS (5)
  - DIZZINESS [None]
  - IRRITABILITY [None]
  - FEELING ABNORMAL [None]
  - FATIGUE [None]
  - NAUSEA [None]
